FAERS Safety Report 7376217-3 (Version None)
Quarter: 2011Q1

REPORT INFORMATION
  Report Type: 
  Country: None (occurrence: None)
  Receive Date: 20110325
  Receipt Date: 20110321
  Transmission Date: 20110831
  Serious: Yes (Hospitalization)
  Sender: FDA-Public Use
  Company Number: US-ABBOTT-11P-163-0713620-00

PATIENT
  Age: 50 Year
  Sex: Male
  Weight: 97.61 kg

DRUGS (5)
  1. APRISO [Concomitant]
     Indication: CROHN'S DISEASE
     Dosage: 4 TABLETS DAILY
  2. HUMIRA [Suspect]
     Indication: CROHN'S DISEASE
     Dates: start: 20110219, end: 20110305
  3. CIPROFLOXACIN [Concomitant]
     Indication: PRODUCT USED FOR UNKNOWN INDICATION
  4. AZATHIOPRINE [Concomitant]
     Indication: PRODUCT USED FOR UNKNOWN INDICATION
     Route: 048
  5. PREDNISONE [Concomitant]
     Indication: PRODUCT USED FOR UNKNOWN INDICATION
     Route: 048

REACTIONS (10)
  - SWELLING FACE [None]
  - EYE PAIN [None]
  - HYPERSOMNIA [None]
  - EYE SWELLING [None]
  - DRUG DOSE OMISSION [None]
  - FATIGUE [None]
  - RHINALGIA [None]
  - CROHN'S DISEASE [None]
  - DEHYDRATION [None]
  - NASAL OEDEMA [None]
